FAERS Safety Report 14387252 (Version 5)
Quarter: 2021Q1

REPORT INFORMATION
  Report Type: Spontaneous
  Country: US (occurrence: US)
  Receive Date: 20180115
  Receipt Date: 20210204
  Transmission Date: 20210419
  Serious: Yes (Hospitalization, Other)
  Sender: FDA-Public Use
  Company Number: US-VIFOR (INTERNATIONAL) INC.-VIT-2018-00308

PATIENT
  Age: 88 Year
  Sex: Male
  Weight: 99 kg

DRUGS (14)
  1. SIMVASTATIN. [Concomitant]
     Active Substance: SIMVASTATIN
  2. VELTASSA [Suspect]
     Active Substance: PATIROMER
     Route: 048
  3. AMLODIPINE BESYLATE. [Concomitant]
     Active Substance: AMLODIPINE BESYLATE
  4. METOPROLOL TARTRATE. [Concomitant]
     Active Substance: METOPROLOL TARTRATE
  5. NOVOLIN/RELION [Concomitant]
     Dosage: 70/30
  6. TORSEMIDE. [Concomitant]
     Active Substance: TORSEMIDE
  7. VITAMIN D [Concomitant]
     Active Substance: VITAMIN D NOS
  8. NITROSTAT [Concomitant]
     Active Substance: NITROGLYCERIN
  9. VELTASSA [Suspect]
     Active Substance: PATIROMER
     Indication: HYPERKALAEMIA
     Route: 048
     Dates: start: 20160824
  10. ASPIRIN. [Concomitant]
     Active Substance: ASPIRIN
  11. DOXYCYCLINE MONOHYDRATE [Concomitant]
     Active Substance: DOXYCYCLINE
  12. TERAZOSIN HCL [Concomitant]
     Active Substance: TERAZOSIN HYDROCHLORIDE
  13. VITAMIN B12 [Concomitant]
     Active Substance: CYANOCOBALAMIN
  14. INSULIN [Concomitant]
     Active Substance: INSULIN NOS

REACTIONS (4)
  - Cataract operation [Recovering/Resolving]
  - Cellulitis [Unknown]
  - COVID-19 [Unknown]
  - Hospitalisation [Unknown]
